FAERS Safety Report 5794578-3 (Version None)
Quarter: 2008Q2

REPORT INFORMATION
  Report Type: 
  Country: None (occurrence: None)
  Receive Date: 20080625
  Receipt Date: 20080610
  Transmission Date: 20081010
  Serious: Yes (Other)
  Sender: FDA-Public Use
  Company Number: JPI-P-003960

PATIENT
  Age: 27 Year
  Sex: Male

DRUGS (2)
  1. LUVOX [Suspect]
     Indication: DRUG USE FOR UNKNOWN INDICATION
     Dosage: (100 MG, 1 D), ORAL
     Route: 048
     Dates: start: 20080122, end: 20080403
  2. OLANZAPINE [Concomitant]

REACTIONS (2)
  - NAIL DISCOLOURATION [None]
  - NAIL DISORDER [None]
